FAERS Safety Report 5001237-3 (Version None)
Quarter: 2006Q1

REPORT INFORMATION
  Report Type: 
  Country: None (occurrence: None)
  Receive Date: 20060315
  Receipt Date: 20051129
  Transmission Date: 20060701
  Serious: Yes (Other)
  Sender: FDA-Public Use
  Company Number: 415851

PATIENT
  Age: 53 Year
  Sex: Female
  Weight: 69.9 kg

DRUGS (1)
  1. BONIVA [Suspect]
     Indication: OSTEOPENIA
     Dosage: 1 PER MONTH ORAL
     Route: 048
     Dates: start: 20050808

REACTIONS (2)
  - ARTHRALGIA [None]
  - BONE PAIN [None]
